FAERS Safety Report 4348287-8 (Version None)
Quarter: 2004Q1

REPORT INFORMATION
  Report Type: 
  Country: None (occurrence: None)
  Receive Date: 20040325
  Receipt Date: 20031121
  Transmission Date: 20041129
  Serious: No
  Sender: FDA-Public Use
  Company Number: USA031151388

PATIENT
  Age: 80 Year
  Sex: Female

DRUGS (12)
  1. FORTEO [Suspect]
     Indication: OSTEOPOROSIS
     Dates: start: 20030726
  2. TENORMIN [Concomitant]
  3. CALCIUM WITH VITAMIN D [Concomitant]
  4. MULTI-VITAMIN [Concomitant]
  5. METMUCIL (PSYLLIUM HYDROPHILIC MUCILLOID) [Concomitant]
  6. ASPIRIN [Concomitant]
  7. FOLIC ACID [Concomitant]
  8. VITAMIN E [Concomitant]
  9. IRON [Concomitant]
  10. PRILOSEC [Concomitant]
  11. FUROSEMIDE [Concomitant]
  12. THYROXINE [Concomitant]

REACTIONS (3)
  - PRURITUS [None]
  - RASH ERYTHEMATOUS [None]
  - SKIN DISCOLOURATION [None]
